FAERS Safety Report 6533356-4 (Version None)
Quarter: 2010Q1

REPORT INFORMATION
  Report Type: 
  Country: None (occurrence: None)
  Receive Date: 20100111
  Receipt Date: 20100107
  Transmission Date: 20100710
  Serious: Yes (Hospitalization)
  Sender: FDA-Public Use
  Company Number: B0624075A

PATIENT
  Age: 47 Year
  Sex: Female
  Weight: 68 kg

DRUGS (3)
  1. LAMOTRIGINE [Suspect]
     Indication: DEPRESSION
     Dosage: 50MG PER DAY
     Route: 065
     Dates: start: 20070924, end: 20071101
  2. TEMAZEPAM [Suspect]
     Indication: AGITATION
     Dosage: 10MG PER DAY
     Dates: end: 20071014
  3. ZOPICLONE [Concomitant]
     Indication: INSOMNIA
     Dosage: 7.5MG PER DAY

REACTIONS (17)
  - AGITATION [None]
  - ASTHENIA [None]
  - ATAXIA [None]
  - CHEST DISCOMFORT [None]
  - CHILLS [None]
  - DIPLOPIA [None]
  - DRUG WITHDRAWAL SYNDROME [None]
  - DYSPNOEA [None]
  - HEADACHE [None]
  - HEART RATE INCREASED [None]
  - HYPERTENSION [None]
  - IMPAIRED WORK ABILITY [None]
  - INSOMNIA [None]
  - MUSCLE TIGHTNESS [None]
  - MUSCLE TWITCHING [None]
  - PALPITATIONS [None]
  - PERIPHERAL COLDNESS [None]
